FAERS Safety Report 9988672 (Version 2)
Quarter: 2014Q2

REPORT INFORMATION
  Report Type: Spontaneous
  Country: US (occurrence: US)
  Receive Date: 20140310
  Receipt Date: 20140414
  Transmission Date: 20141212
  Serious: No
  Sender: FDA-Public Use
  Company Number: US-009507513-1403USA000404

PATIENT
  Age: 67 Year
  Sex: Female

DRUGS (3)
  1. DULERA [Suspect]
     Indication: ASTHMA
     Dosage: 400/10 MCG, TWICE DAILY
     Route: 055
     Dates: start: 201202
  2. SPIRIVA [Concomitant]
     Dosage: UNSPECIFIED DOSE ONCE DAILY
  3. PROVENTIL [Concomitant]
     Dosage: UNK, PRN
     Route: 055

REACTIONS (3)
  - Dyspnoea [Recovering/Resolving]
  - Product container issue [Unknown]
  - Underdose [Unknown]
